FAERS Safety Report 23863734 (Version 1)
Quarter: 2024Q2

REPORT INFORMATION
  Report Type: Spontaneous
  Country: VE (occurrence: VE)
  Receive Date: 20240516
  Receipt Date: 20240516
  Transmission Date: 20240716
  Serious: Yes (Death)
  Sender: FDA-Public Use
  Company Number: VE-002147023-NVSC2024VE103078

PATIENT
  Sex: Female

DRUGS (1)
  1. GLIVEC [Suspect]
     Active Substance: IMATINIB MESYLATE
     Indication: Chronic myeloid leukaemia
     Dosage: 400 MG (4X100MG)
     Route: 065

REACTIONS (4)
  - Cardiac arrest [Fatal]
  - Malaise [Unknown]
  - Limb discomfort [Unknown]
  - Chest pain [Unknown]
